FAERS Safety Report 9729732 (Version 1)
Quarter: 2013Q4

REPORT INFORMATION
  Report Type: Spontaneous
  Country: US (occurrence: US)
  Receive Date: 20131204
  Receipt Date: 20131204
  Transmission Date: 20140711
  Serious: No
  Sender: FDA-Public Use
  Company Number: US-GILEAD-2009-0021811

PATIENT
  Age: 60 Year
  Sex: Female

DRUGS (11)
  1. LETAIRIS [Suspect]
     Indication: PULMONARY ARTERIAL HYPERTENSION
  2. REVATIO [Concomitant]
  3. BUMEX [Concomitant]
  4. CARTIA [Concomitant]
  5. DUONEB [Concomitant]
  6. LIPITOR [Concomitant]
  7. KLOR-CON [Concomitant]
  8. PREDNISONE [Concomitant]
  9. ZYRTEC [Concomitant]
  10. COMBIVENT [Concomitant]
  11. VALTREX [Concomitant]

REACTIONS (1)
  - Vision blurred [Not Recovered/Not Resolved]
